FAERS Safety Report 18699181 (Version 1)
Quarter: 2021Q1

REPORT INFORMATION
  Report Type: Spontaneous
  Country: US (occurrence: US)
  Receive Date: 20210104
  Receipt Date: 20210104
  Transmission Date: 20210419
  Serious: No
  Sender: FDA-Public Use
  Company Number: US-PFIZER INC-2018191342

PATIENT
  Age: 67 Year
  Sex: Female

DRUGS (3)
  1. LYRICA [Suspect]
     Active Substance: PREGABALIN
     Indication: FIBROMYALGIA
  2. LYRICA [Suspect]
     Active Substance: PREGABALIN
     Indication: VIRAL CARDIOMYOPATHY
  3. LYRICA [Suspect]
     Active Substance: PREGABALIN
     Indication: HYPONATRAEMIA
     Dosage: 50 MG, DAILY (TAKE 1 CAPSULE BY MOUTH DAILY)
     Route: 048
     Dates: start: 20190524

REACTIONS (1)
  - Confusional state [Unknown]
